FAERS Safety Report 12385475 (Version 17)
Quarter: 2017Q1

REPORT INFORMATION
  Report Type: Spontaneous
  Country: JP (occurrence: JP)
  Receive Date: 20160519
  Receipt Date: 20170214
  Transmission Date: 20170428
  Serious: Yes (Hospitalization, Disabling)
  Sender: FDA-Public Use
  Company Number: PHJP2016JP012486

PATIENT
  Age: 41 Year
  Sex: Female
  Weight: 47 kg

DRUGS (6)
  1. GILENYA [Suspect]
     Active Substance: FINGOLIMOD HYDROCHLORIDE
     Indication: MULTIPLE SCLEROSIS
     Dosage: 0.5 MG, QD
     Route: 048
     Dates: start: 201205, end: 20160506
  2. HALCION [Concomitant]
     Active Substance: TRIAZOLAM
     Indication: INSOMNIA
     Dosage: 0.25 MG, UNK
     Route: 048
     Dates: end: 20160506
  3. FERRUM [Concomitant]
     Active Substance: FERROUS FUMARATE
     Indication: IRON DEFICIENCY ANAEMIA
     Dosage: 100 MG, BIW
     Route: 048
     Dates: end: 20160506
  4. MEXITIL [Concomitant]
     Active Substance: MEXILETINE HYDROCHLORIDE
     Indication: NEURALGIA
     Dosage: 100 MG, TID
     Route: 048
     Dates: end: 20160506
  5. SENNOSIDE [Concomitant]
     Active Substance: SENNOSIDES
     Indication: CONSTIPATION
     Dosage: 48 MG, QD
     Route: 048
     Dates: end: 20160506
  6. ROHYPNOL [Concomitant]
     Active Substance: FLUNITRAZEPAM
     Indication: INSOMNIA
     Dosage: 1 MG, UNK
     Route: 048
     Dates: end: 20160506

REACTIONS (8)
  - White matter lesion [Recovered/Resolved with Sequelae]
  - Hemiplegia [Recovering/Resolving]
  - Demyelination [Unknown]
  - Lymphocytic infiltration [Unknown]
  - Apathy [Recovering/Resolving]
  - Cognitive disorder [Recovered/Resolved with Sequelae]
  - Anal incontinence [Unknown]
  - Urinary incontinence [Unknown]

NARRATIVE: CASE EVENT DATE: 20160501
